FAERS Safety Report 7527558-8 (Version None)
Quarter: 2011Q2

REPORT INFORMATION
  Report Type: 
  Country: None (occurrence: None)
  Receive Date: 20110512
  Receipt Date: 20110216
  Transmission Date: 20111010
  Serious: No
  Sender: FDA-Public Use
  Company Number: 1000018871

PATIENT
  Age: 46 Year
  Sex: Female

DRUGS (14)
  1. B12 (CYANOCOBALAMIN-TANNIN COMPLEX) (INJECTION) (CYANOCOBALAMIN-TANNIN [Concomitant]
  2. WELLBUTRIN SR (BUPROPION HYDROCHLORIDE SUSTAINED-RELEASE) (100 MILLIGR [Concomitant]
  3. SAVELLA [Suspect]
     Indication: FIBROMYALGIA
     Dosage: 200 MG (100 MG,2 IN 1 D),ORAL ; 100 MG (50 MG,2 IN 1 D),ORAL
     Route: 048
     Dates: start: 20110201
  4. SAVELLA [Suspect]
     Indication: FIBROMYALGIA
     Dosage: 200 MG (100 MG,2 IN 1 D),ORAL ; 100 MG (50 MG,2 IN 1 D),ORAL
     Route: 048
     Dates: start: 20110118, end: 20110201
  5. SEROQUEL (QUETIAPINE FUMARATE) (200 MILLIGRAM, TABLETS) (QUETIAPINE FU [Concomitant]
  6. KLONOPIN (CLONAZEPAM) (0.5 MILLIGRAM, TABLETS) (CLONAZEPAM) [Concomitant]
  7. CARAFATE (SUCRALFATE) (1 GRAM, TABLETS) (SUCRALFATE) [Concomitant]
  8. RANITIDINE (RANITIDINE) (150 MILLIGRAM, TABLETS) (RANITIDINE) [Concomitant]
  9. HYDROCODONE (HYDROCODONE) (TABLETS) (HYDROCODONE) [Concomitant]
  10. IBUPROFEN (IBUPROFEN) (600 MILLIGRAM, TABLETS) (IBUPROFEN) [Concomitant]
  11. SAVELLA [Suspect]
     Indication: FIBROMYALGIA
     Dosage: SEE IMAGE
     Route: 048
     Dates: start: 20091228, end: 20110117
  12. SAVELLA [Suspect]
     Indication: FIBROMYALGIA
     Dosage: SEE IMAGE
     Route: 048
     Dates: start: 20091224, end: 20091227
  13. SAVELLA [Suspect]
     Indication: FIBROMYALGIA
     Dosage: SEE IMAGE
     Route: 048
     Dates: start: 20091221, end: 20091221
  14. SAVELLA [Suspect]
     Indication: FIBROMYALGIA
     Dosage: SEE IMAGE
     Route: 048
     Dates: start: 20091222, end: 20091223

REACTIONS (1)
  - BLEPHAROSPASM [None]
